FAERS Safety Report 5055963-0 (Version None)
Quarter: 2006Q3

REPORT INFORMATION
  Report Type: 
  Country: None (occurrence: None)
  Receive Date: 20060720
  Receipt Date: 20060606
  Transmission Date: 20061208
  Serious: Yes (Hospitalization)
  Sender: FDA-Public Use
  Company Number: FR-AVENTIS-200612046FR

PATIENT
  Age: 72 Year
  Sex: Male
  Weight: 90 kg

DRUGS (9)
  1. LASILIX [Suspect]
     Route: 048
     Dates: end: 20060428
  2. FOZITEC [Suspect]
     Route: 048
     Dates: start: 20060224, end: 20060505
  3. ALLOPURINOL [Suspect]
     Route: 048
     Dates: end: 20060509
  4. PAROXETINE HCL [Suspect]
     Route: 048
     Dates: end: 20060510
  5. AMIODARONE HCL [Suspect]
     Route: 048
     Dates: end: 20060510
  6. SIMVASTATIN [Suspect]
     Route: 048
     Dates: end: 20060510
  7. GABAPENTIN [Concomitant]
     Route: 048
  8. PERMIXON [Concomitant]
     Route: 048
  9. VITAMIN B1 AND B6 [Concomitant]
     Route: 048

REACTIONS (11)
  - DERMATITIS BULLOUS [None]
  - ESCHERICHIA URINARY TRACT INFECTION [None]
  - HYPERNATRAEMIA [None]
  - LEUKOCYTOSIS [None]
  - PLATELET COUNT DECREASED [None]
  - PURPURA [None]
  - RASH PUSTULAR [None]
  - RENAL FAILURE [None]
  - SKIN NECROSIS [None]
  - STAPHYLOCOCCAL INFECTION [None]
  - STREPTOCOCCAL INFECTION [None]
